FAERS Safety Report 8400707-5 (Version None)
Quarter: 2012Q2

REPORT INFORMATION
  Report Type: 
  Country: None (occurrence: None)
  Receive Date: 20120531
  Receipt Date: 20120524
  Transmission Date: 20120825
  Serious: Yes (Other)
  Sender: FDA-Public Use
  Company Number: JP-GILEAD-2012-0055805

PATIENT
  Age: 32 Year
  Sex: Female

DRUGS (2)
  1. ADCIRCA [Concomitant]
     Route: 048
  2. LETAIRIS [Suspect]
     Indication: PRODUCT USED FOR UNKNOWN INDICATION
     Dosage: UNK
     Route: 048

REACTIONS (1)
  - MUSCULOSKELETAL PAIN [None]
